FAERS Safety Report 8909607 (Version 1)
Quarter: 2012Q4

REPORT INFORMATION
  Report Type: Spontaneous
  Country: US (occurrence: None)
  Receive Date: 20121109
  Receipt Date: 20121109
  Transmission Date: 20130627
  Serious: Yes (Other)
  Sender: FDA-Public Use
  Company Number: 2012P1061313

PATIENT
  Age: 66 Year
  Sex: Female
  Weight: 56.7 kg

DRUGS (11)
  1. FENTANYL PATCH [Suspect]
     Indication: DEMYELINATING POLYNEUROPATHY
     Dosage: 1 patch
     Route: 062
     Dates: start: 2011
  2. FENTANYL PATCH 25 MCG/HR (NO PREF. NAME) [Suspect]
     Indication: DEMYELINATING POLYNEUROPATHY
     Dates: start: 201008
  3. FENTANYL PATCH [Suspect]
     Indication: DEMYELINATING POLYNEUROPATHY
     Dates: end: 2011
  4. HYDROCHLOROTHIAZIDE)E) [Concomitant]
  5. SOTALOL [Concomitant]
  6. FUROSEMIDE [Concomitant]
  7. AMITRIPTYLINE [Concomitant]
  8. CO Q 10 [Concomitant]
  9. VITAMIN D [Concomitant]
  10. MULTIVITAMIN [Concomitant]
  11. ALEVE [Concomitant]

REACTIONS (10)
  - Fall [None]
  - Confusional state [None]
  - Pyrexia [None]
  - Vomiting [None]
  - Diarrhoea [None]
  - Cytomegalovirus infection [None]
  - Pancreatitis [None]
  - Inadequate analgesia [None]
  - Abasia [None]
  - Application site discomfort [None]
